FAERS Safety Report 14022017 (Version 1)
Quarter: 2017Q3

REPORT INFORMATION
  Report Type: Spontaneous
  Country: US (occurrence: US)
  Receive Date: 20170928
  Receipt Date: 20170928
  Transmission Date: 20171128
  Serious: No
  Sender: FDA-Public Use
  Company Number: US-IRONWOOD PHARMACEUTICALS, INC.-IRWD2017003760

PATIENT
  Sex: Male

DRUGS (1)
  1. ZURAMPIC [Suspect]
     Active Substance: LESINURAD
     Indication: PRODUCT USED FOR UNKNOWN INDICATION
     Dosage: 200 MG (FREQUENCY UNKNOWN)
     Route: 065

REACTIONS (1)
  - Liver function test increased [Recovered/Resolved]
